FAERS Safety Report 15718897 (Version 2)
Quarter: 2019Q3

REPORT INFORMATION
  Report Type: Spontaneous
  Country: US (occurrence: US)
  Receive Date: 20181213
  Receipt Date: 20190912
  Transmission Date: 20191004
  Serious: Yes (Hospitalization, Other)
  Sender: FDA-Public Use
  Company Number: US-ELI_LILLY_AND_COMPANY-US201812000644

PATIENT
  Sex: Female

DRUGS (5)
  1. TRULICITY [Suspect]
     Active Substance: DULAGLUTIDE
     Indication: TYPE 2 DIABETES MELLITUS
     Dosage: 1.5 MG, UNKNOWN
     Route: 065
     Dates: end: 201906
  2. BASAGLAR [Interacting]
     Active Substance: INSULIN GLARGINE
     Indication: TYPE 2 DIABETES MELLITUS
     Dosage: 50 U, EACH MORNING
  3. HUMALOG [Suspect]
     Active Substance: INSULIN LISPRO
     Indication: TYPE 2 DIABETES MELLITUS
     Dosage: 15 U, UNKNOWN
     Route: 065
     Dates: start: 2017
  4. CORTISONE [Interacting]
     Active Substance: CORTISONE
     Indication: ARTHRITIS
     Dosage: UNK, UNKNOWN
     Route: 065
  5. CORTISONE [Interacting]
     Active Substance: CORTISONE
     Indication: SPONDYLITIS

REACTIONS (6)
  - Blood glucose increased [Unknown]
  - Spondylitis [Recovering/Resolving]
  - Nerve compression [Recovering/Resolving]
  - Weight decreased [Unknown]
  - Arthritis [Recovering/Resolving]
  - Drug interaction [Unknown]
